FAERS Safety Report 4505441-X (Version None)
Quarter: 2004Q4

REPORT INFORMATION
  Report Type: 
  Country: None (occurrence: None)
  Receive Date: 20041116
  Receipt Date: 20041101
  Transmission Date: 20050328
  Serious: Yes (Hospitalization)
  Sender: FDA-Public Use
  Company Number: 2004AP04243

PATIENT
  Age: 76 Year
  Sex: Male

DRUGS (12)
  1. IRESSA [Suspect]
     Indication: LUNG ADENOCARCINOMA
     Dosage: 250 MG DAILY PO
     Route: 048
     Dates: start: 20040617, end: 20040622
  2. IRESSA [Suspect]
     Indication: NON-SMALL CELL LUNG CANCER
     Dosage: 250 MG DAILY PO
     Route: 048
     Dates: start: 20040617, end: 20040622
  3. MS CONTIN [Concomitant]
  4. LAXOBERON [Concomitant]
  5. LOXONIN [Concomitant]
  6. MUCOSTA [Concomitant]
  7. AMLODIN [Concomitant]
  8. BLOPRESS [Concomitant]
  9. LIPITOR [Concomitant]
  10. HARNAL [Concomitant]
  11. CARBOPLATIN AUC [Concomitant]
  12. DOCETAXEL HYDRATE [Concomitant]

REACTIONS (8)
  - BACTERIA STOOL IDENTIFIED [None]
  - DIARRHOEA [None]
  - ENTEROCOCCAL INFECTION [None]
  - ENTEROCOLITIS [None]
  - ESCHERICHIA INFECTION [None]
  - HAEMATOCRIT DECREASED [None]
  - HAEMOGLOBIN DECREASED [None]
  - INTESTINAL POLYP [None]
